FAERS Safety Report 5485373-3 (Version None)
Quarter: 2007Q4

REPORT INFORMATION
  Report Type: 
  Country: None (occurrence: None)
  Receive Date: 20071015
  Receipt Date: 20071009
  Transmission Date: 20080405
  Serious: Yes (Death, Other)
  Sender: FDA-Public Use
  Company Number: JP-BRISTOL-MYERS SQUIBB COMPANY-13908967

PATIENT
  Age: 58 Year
  Sex: Female

DRUGS (8)
  1. VEPESID [Suspect]
     Indication: HEPATIC MASS
     Route: 013
  2. ADRIAMYCIN RDF [Suspect]
  3. CYCLOPHOSPHAMIDE [Suspect]
     Route: 048
  4. VINCRISTINE SULFATE [Suspect]
  5. CISPLATIN [Suspect]
     Indication: HEPATIC MASS
     Route: 041
  6. FLUOROURACIL [Suspect]
     Route: 048
  7. RADIATION THERAPY [Suspect]
  8. RANDA [Concomitant]

REACTIONS (3)
  - INTERSTITIAL LUNG DISEASE [None]
  - MALIGNANT NEOPLASM PROGRESSION [None]
  - NEOPLASM RECURRENCE [None]
